FAERS Safety Report 24768235 (Version 1)
Quarter: 2024Q4

REPORT INFORMATION
  Report Type: Spontaneous
  Country: FR (occurrence: FR)
  Receive Date: 20241223
  Receipt Date: 20241223
  Transmission Date: 20250114
  Serious: Yes (Hospitalization)
  Sender: UCB
  Company Number: None

PATIENT
  Age: 85 Year
  Sex: Female
  Weight: 78 kg

DRUGS (5)
  1. VIMPAT [Suspect]
     Active Substance: LACOSAMIDE
     Indication: Tremor
     Dosage: 50MG/ J
     Route: 048
     Dates: start: 20240225, end: 20240229
  2. VIMPAT [Suspect]
     Active Substance: LACOSAMIDE
     Dosage: 100MG/ J
     Route: 048
     Dates: start: 20240229
  3. CEFOTAXIME [Suspect]
     Active Substance: CEFOTAXIME SODIUM
     Indication: Pyelonephritis
     Dosage: 1G X 3*J, 1 G/4 ML, POWDER AND SOLVENT FOR SOLUTION FOR INJECTION (I.M.)
     Route: 042
     Dates: start: 20240229, end: 20240308
  4. LENALIDOMIDE [Suspect]
     Active Substance: LENALIDOMIDE
     Indication: Cutaneous lymphoma
     Dosage: 10MG/ J
     Route: 048
     Dates: start: 20240225, end: 20240229
  5. LENALIDOMIDE [Suspect]
     Active Substance: LENALIDOMIDE
     Dosage: 5MG/ J
     Route: 048
     Dates: start: 20240229

REACTIONS (1)
  - Mixed liver injury [Recovered/Resolved]

NARRATIVE: CASE EVENT DATE: 20240301
